FAERS Safety Report 17570439 (Version 1)
Quarter: 2020Q1

REPORT INFORMATION
  Report Type: Report from Study
  Country: CO (occurrence: CO)
  Receive Date: 20200323
  Receipt Date: 20200323
  Transmission Date: 20200409
  Serious: Yes (Hospitalization)
  Sender: FDA-Public Use
  Company Number: CO-ROCHE-2475441

PATIENT
  Sex: Female

DRUGS (1)
  1. RITUXIMAB. [Suspect]
     Active Substance: RITUXIMAB
     Indication: PRODUCT USED FOR UNKNOWN INDICATION
     Route: 065

REACTIONS (13)
  - Drug ineffective [Unknown]
  - Musculoskeletal pain [Unknown]
  - Mass [Unknown]
  - Ear pain [Unknown]
  - Pyrexia [Unknown]
  - Eye pain [Unknown]
  - Arthralgia [Unknown]
  - Cellulitis [Unknown]
  - Malaise [Unknown]
  - Swelling face [Unknown]
  - Acne [Unknown]
  - Pain in extremity [Unknown]
  - Pain [Unknown]
